FAERS Safety Report 6254559-2 (Version None)
Quarter: 2009Q3

REPORT INFORMATION
  Report Type: 
  Country: None (occurrence: None)
  Receive Date: 20090702
  Receipt Date: 20090622
  Transmission Date: 20100115
  Serious: Yes (Death, Hospitalization)
  Sender: FDA-Public Use
  Company Number: A0754009A

PATIENT
  Age: 80 Year
  Sex: Female
  Weight: 52.3 kg

DRUGS (7)
  1. AVANDIA [Suspect]
     Dosage: 8MG PER DAY
     Route: 048
     Dates: start: 20050627, end: 20060526
  2. NORVASC [Concomitant]
     Dosage: 10MG PER DAY
  3. LISINOPRIL [Concomitant]
     Dosage: 40MG PER DAY
  4. PROTONIX [Concomitant]
     Dosage: 40MG PER DAY
  5. FERROUS SULFATE TAB [Concomitant]
  6. GLUCOPHAGE [Concomitant]
     Dosage: 1000MG PER DAY
  7. GLIPIZIDE [Concomitant]
     Dosage: 5MG PER DAY

REACTIONS (6)
  - BRADYCARDIA [None]
  - CHEST PAIN [None]
  - HYPOKALAEMIA [None]
  - HYPOTENSION [None]
  - MYOCARDIAL INFARCTION [None]
  - RENAL FAILURE [None]
